FAERS Safety Report 8069336-X (Version None)
Quarter: 2012Q1

REPORT INFORMATION
  Report Type: 
  Country: None (occurrence: None)
  Receive Date: 20120125
  Receipt Date: 20120119
  Transmission Date: 20120608
  Serious: Yes (Other)
  Sender: FDA-Public Use
  Company Number: AU-JNJFOC-20120108651

PATIENT
  Sex: Female

DRUGS (2)
  1. INVEGA SUSTENNA [Suspect]
     Indication: PRODUCT USED FOR UNKNOWN INDICATION
     Route: 030
     Dates: start: 20111123
  2. INVEGA SUSTENNA [Suspect]
     Route: 030
     Dates: end: 20111123

REACTIONS (2)
  - AMENORRHOEA [None]
  - HALLUCINATION [None]
